FAERS Safety Report 9735642 (Version 1)
Quarter: 2013Q4

REPORT INFORMATION
  Report Type: Report from Study
  Country: DE (occurrence: DE)
  Receive Date: 20131206
  Receipt Date: 20131206
  Transmission Date: 20140711
  Serious: No
  Sender: FDA-Public Use
  Company Number: PHHY2013DE142236

PATIENT
  Sex: Male

DRUGS (5)
  1. AMN107 [Suspect]
     Indication: CHRONIC MYELOID LEUKAEMIA
     Dosage: 600 MG, PER DAY
     Route: 048
     Dates: start: 20130712
  2. RAMIPRIL [Concomitant]
     Dosage: 5 MG
     Dates: start: 20090226
  3. METOPROLOL [Concomitant]
     Dosage: 95 MG
     Dates: start: 20090226
  4. TORASEMID [Concomitant]
     Dates: start: 20090226
  5. SIMVASTATIN [Concomitant]
     Dosage: 40 MG
     Dates: start: 20090226

REACTIONS (4)
  - Anaemia [Not Recovered/Not Resolved]
  - Diarrhoea [Not Recovered/Not Resolved]
  - Blood bilirubin increased [Not Recovered/Not Resolved]
  - Pruritus [Not Recovered/Not Resolved]
